FAERS Safety Report 7190176-8 (Version None)
Quarter: 2010Q4

REPORT INFORMATION
  Report Type: 
  Country: None (occurrence: None)
  Receive Date: 20101223
  Receipt Date: 20101214
  Transmission Date: 20110411
  Serious: Yes (Other)
  Sender: FDA-Public Use
  Company Number: US-PFIZER INC-2010172022

PATIENT
  Sex: Female
  Weight: 79.8 kg

DRUGS (3)
  1. PRISTIQ [Suspect]
     Indication: DEPRESSION
     Dosage: 50 MG, 1X/DAY
     Route: 048
     Dates: start: 20101208, end: 20101208
  2. ZYRTEC [Concomitant]
     Dosage: UNK
  3. ORTHO TRI-CYCLEN [Concomitant]
     Dosage: UNK

REACTIONS (4)
  - DYSPNOEA [None]
  - SINUSITIS [None]
  - TREMOR [None]
  - VOMITING [None]
